FAERS Safety Report 13057392 (Version 2)
Quarter: 2017Q1

REPORT INFORMATION
  Report Type: Spontaneous
  Country: CA (occurrence: CA)
  Receive Date: 20161223
  Receipt Date: 20170112
  Transmission Date: 20170428
  Serious: Yes (Hospitalization, Other)
  Sender: FDA-Public Use
  Company Number: CA-ORION CORPORATION ORION PHARMA-TREX2016-2703

PATIENT
  Age: 61 Year
  Sex: Female

DRUGS (11)
  1. METHOTREXATE (TRADE NAME UNKNOWN) [Suspect]
     Active Substance: METHOTREXATE
     Route: 065
  2. CALCIUM [Concomitant]
     Active Substance: CALCIUM
     Route: 065
  3. MOBICOX [Concomitant]
     Active Substance: MELOXICAM
     Route: 065
  4. ENBREL [Suspect]
     Active Substance: ETANERCEPT
     Indication: RHEUMATOID ARTHRITIS
     Dosage: 50 MG/1.0 ML
     Route: 058
     Dates: start: 20101109
  5. CELEXA [Concomitant]
     Active Substance: CITALOPRAM HYDROBROMIDE
     Route: 065
  6. VITAMIN C [Concomitant]
     Active Substance: ASCORBIC ACID
     Route: 065
  7. VITAMIN D [Concomitant]
     Active Substance: CHOLECALCIFEROL
     Route: 065
  8. ERGOCALCIFEROL. [Concomitant]
     Active Substance: ERGOCALCIFEROL
     Route: 065
  9. PLAQUENIL [Concomitant]
     Active Substance: HYDROXYCHLOROQUINE SULFATE
     Route: 065
  10. ATIVAN [Concomitant]
     Active Substance: LORAZEPAM
     Route: 065
  11. VITAMIN E [Concomitant]
     Active Substance: .ALPHA.-TOCOPHEROL
     Route: 065

REACTIONS (3)
  - Pyrexia [Recovered/Resolved]
  - Stomatitis [Recovered/Resolved]
  - Oral disorder [Unknown]

NARRATIVE: CASE EVENT DATE: 20130813
